FAERS Safety Report 7803716-X (Version None)
Quarter: 2011Q4

REPORT INFORMATION
  Report Type: 
  Country: None (occurrence: None)
  Receive Date: 20111010
  Receipt Date: 20110930
  Transmission Date: 20120403
  Serious: No
  Sender: FDA-Public Use
  Company Number: US-BIOGENIDEC-2011BI037705

PATIENT
  Sex: Female

DRUGS (2)
  1. AVONEX [Suspect]
     Indication: MULTIPLE SCLEROSIS
     Route: 030
     Dates: start: 20070101, end: 20100101
  2. AVONEX [Suspect]
     Route: 030
     Dates: start: 19980101, end: 20060101

REACTIONS (3)
  - HEADACHE [None]
  - CHILLS [None]
  - ANXIETY [None]
